FAERS Safety Report 24617429 (Version 1)
Quarter: 2024Q4

REPORT INFORMATION
  Report Type: Spontaneous
  Country: JP (occurrence: JP)
  Receive Date: 20241114
  Receipt Date: 20241114
  Transmission Date: 20250115
  Serious: Yes (Death, Other)
  Sender: GILEAD
  Company Number: JP-GILEAD-2024-0693814

PATIENT
  Age: 9 Decade
  Sex: Male

DRUGS (2)
  1. VEKLURY [Suspect]
     Active Substance: REMDESIVIR
     Indication: COVID-19
     Dosage: UNK
     Route: 041
     Dates: start: 20241106, end: 20241106
  2. AZOSEMIDE [Concomitant]
     Active Substance: AZOSEMIDE
     Indication: Diuretic therapy

REACTIONS (3)
  - Respiratory arrest [Fatal]
  - Cardiac failure acute [Fatal]
  - Incorrect drug administration rate [Recovered/Resolved]

NARRATIVE: CASE EVENT DATE: 20241101
